FAERS Safety Report 13254380 (Version 1)
Quarter: 2017Q1

REPORT INFORMATION
  Report Type: Spontaneous
  Country: GB (occurrence: GB)
  Receive Date: 20170221
  Receipt Date: 20170221
  Transmission Date: 20170428
  Serious: Yes (Life-Threatening, Hospitalization)
  Sender: FDA-Public Use
  Company Number: GB-ACCORD-048281

PATIENT
  Age: 76 Year
  Weight: 76.8 kg

DRUGS (12)
  1. INDAPAMIDE/INDAPAMIDE HEMIHYDRATE [Concomitant]
  2. METHOTREXATE. [Suspect]
     Active Substance: METHOTREXATE
     Indication: RHEUMATOID ARTHRITIS
     Route: 048
     Dates: start: 1997, end: 2017
  3. FOLIC ACID. [Concomitant]
     Active Substance: FOLIC ACID
  4. HYDROMOL EMOLLIENT [Concomitant]
  5. CITALOPRAM [Concomitant]
     Active Substance: CITALOPRAM HYDROBROMIDE
  6. FLIXONASE [Concomitant]
     Active Substance: FLUTICASONE PROPIONATE
  7. ATORVASTATIN [Concomitant]
     Active Substance: ATORVASTATIN
  8. ACETYLSALICYLIC ACID [Concomitant]
     Active Substance: ASPIRIN
  9. SALBUTAMOL [Concomitant]
     Active Substance: ALBUTEROL
  10. LEVOTHYROXINE. [Concomitant]
     Active Substance: LEVOTHYROXINE
  11. PRO D3 [Concomitant]
  12. CODEINE PHOSPHATE/PARACETAMOL [Concomitant]

REACTIONS (4)
  - Chest discomfort [Unknown]
  - Folate deficiency [Recovered/Resolved]
  - Pancytopenia [Unknown]
  - Pulmonary fibrosis [Not Recovered/Not Resolved]

NARRATIVE: CASE EVENT DATE: 201611
